FAERS Safety Report 6089689-1 (Version None)
Quarter: 2009Q1

REPORT INFORMATION
  Report Type: 
  Country: None (occurrence: None)
  Receive Date: 20090224
  Receipt Date: 20090218
  Transmission Date: 20090719
  Serious: No
  Sender: FDA-Public Use
  Company Number: US-B.I. PHARMACEUTICALS,INC./RIDGEFIELD-2009-BP-02111BP

PATIENT
  Sex: Female

DRUGS (2)
  1. SPIRIVA [Suspect]
     Indication: CHRONIC OBSTRUCTIVE PULMONARY DISEASE
     Dosage: 18MCG
     Route: 055
     Dates: start: 20080601
  2. GENERIC FOSAMAX [Concomitant]
     Indication: OSTEOPOROSIS

REACTIONS (4)
  - ADVERSE DRUG REACTION [None]
  - DRY THROAT [None]
  - NOCTURIA [None]
  - OROPHARYNGEAL PAIN [None]
